FAERS Safety Report 16882557 (Version 1)
Quarter: 2019Q4

REPORT INFORMATION
  Report Type: Spontaneous
  Country: US (occurrence: US)
  Receive Date: 20191003
  Receipt Date: 20191003
  Transmission Date: 20200122
  Serious: No
  Sender: FDA-Public Use
  Company Number: US-ELI_LILLY_AND_COMPANY-US201910001294

PATIENT
  Sex: Male

DRUGS (4)
  1. ZYPREXA [Suspect]
     Active Substance: OLANZAPINE
     Dosage: 10 MG, UNKNOWN
     Route: 065
     Dates: start: 2007
  2. ZOLOFT [Concomitant]
     Active Substance: SERTRALINE HYDROCHLORIDE
     Indication: PRODUCT USED FOR UNKNOWN INDICATION
     Dosage: UNK, UNKNOWN
  3. ZYPREXA [Suspect]
     Active Substance: OLANZAPINE
     Dosage: 7.5 MG, UNKNOWN
     Route: 065
     Dates: start: 2007
  4. ZYPREXA [Suspect]
     Active Substance: OLANZAPINE
     Indication: ADJUSTMENT DISORDER
     Dosage: 5 MG, UNKNOWN
     Route: 065
     Dates: start: 2007

REACTIONS (3)
  - Gynaecomastia [Unknown]
  - Hormone level abnormal [Unknown]
  - Weight increased [Unknown]
